FAERS Safety Report 15067067 (Version 1)
Quarter: 2018Q2

REPORT INFORMATION
  Report Type: Spontaneous
  Country: US (occurrence: US)
  Receive Date: 20180606
  Receipt Date: 20180606
  Transmission Date: 20180711
  Serious: Yes (Other)
  Sender: FDA-Public Use
  Company Number: None

PATIENT
  Age: 68 Year
  Sex: Female
  Weight: 127.8 kg

DRUGS (11)
  1. AMLODIPINE [Concomitant]
     Active Substance: AMLODIPINE BESYLATE
  2. ELIQUIS [Concomitant]
     Active Substance: APIXABAN
  3. PRAVASTATIN. [Concomitant]
     Active Substance: PRAVASTATIN
  4. AFINITOR [Concomitant]
     Active Substance: EVEROLIMUS
  5. CAPECITABINE. [Concomitant]
     Active Substance: CAPECITABINE
  6. NOVOLOG [Concomitant]
     Active Substance: INSULIN ASPART
  7. ETODOLAC. [Concomitant]
     Active Substance: ETODOLAC
  8. AFINITOR [Suspect]
     Active Substance: EVEROLIMUS
     Indication: BREAST CANCER
     Route: 048
     Dates: start: 20180517, end: 20180606
  9. LISINOPRIL. [Concomitant]
     Active Substance: LISINOPRIL
  10. EXEMESTANE. [Concomitant]
     Active Substance: EXEMESTANE
  11. IBRANCE [Concomitant]
     Active Substance: PALBOCICLIB

REACTIONS (4)
  - Blood glucose decreased [None]
  - Arthralgia [None]
  - Hypotension [None]
  - Decreased activity [None]
